FAERS Safety Report 21781139 (Version 1)
Quarter: 2022Q4

REPORT INFORMATION
  Report Type: Report from Study
  Country: US (occurrence: US)
  Receive Date: 20221227
  Receipt Date: 20221227
  Transmission Date: 20230113
  Serious: Yes (Hospitalization, Other)
  Sender: FDA-Public Use
  Company Number: US-ABBVIE-4250377

PATIENT
  Age: 66 Year
  Sex: Male
  Weight: 117 kg

DRUGS (10)
  1. SKYRIZI [Suspect]
     Active Substance: RISANKIZUMAB-RZAA
     Indication: Psoriasis
     Route: 058
     Dates: start: 2019
  2. 100 mg Gabapentin [Concomitant]
     Indication: Product used for unknown indication
  3. 20 mg Cymbalta [Concomitant]
     Indication: Product used for unknown indication
  4. 10 mg Atorvastatin calcium [Concomitant]
     Indication: Product used for unknown indication
  5. 50 mg Tramadol HCL [Concomitant]
     Indication: Product used for unknown indication
  6. 20 mg Furosemide [Concomitant]
     Indication: Product used for unknown indication
  7. VITAMIN C [Concomitant]
     Active Substance: ASCORBIC ACID
     Indication: Product used for unknown indication
  8. MAGNESIUM [Concomitant]
     Active Substance: MAGNESIUM
     Indication: Product used for unknown indication
  9. 100 IU/mL Levemir [Concomitant]
     Indication: Product used for unknown indication
  10. METOPROLOL SUCCINATE [Concomitant]
     Active Substance: METOPROLOL SUCCINATE
     Indication: Product used for unknown indication

REACTIONS (2)
  - Spinal cord infection [Recovered/Resolved]
  - Incision site pruritus [Not Recovered/Not Resolved]

NARRATIVE: CASE EVENT DATE: 20220201
